FAERS Safety Report 12376280 (Version 1)
Quarter: 2016Q2

REPORT INFORMATION
  Report Type: Spontaneous
  Country: US (occurrence: None)
  Receive Date: 20160516
  Receipt Date: 20160516
  Transmission Date: 20160815
  Serious: No
  Sender: FDA-Public Use
  Company Number: None

PATIENT
  Age: 64 Year
  Sex: Female

DRUGS (4)
  1. SULFAZINE [Concomitant]
     Active Substance: SULFASALAZINE
  2. XELJANZ [Suspect]
     Active Substance: TOFACITINIB CITRATE
     Indication: RHEUMATOID ARTHRITIS
     Dosage: 5MG X 2 = 10MG BID PO
     Route: 048
     Dates: start: 201604
  3. DICLOFENAC [Concomitant]
     Active Substance: DICLOFENAC
  4. PREMPO [Concomitant]

REACTIONS (1)
  - Bronchiectasis [None]

NARRATIVE: CASE EVENT DATE: 2016
